FAERS Safety Report 4489055-6 (Version None)
Quarter: 2004Q4

REPORT INFORMATION
  Report Type: 
  Country: None (occurrence: None)
  Receive Date: 20041029
  Receipt Date: 20030605
  Transmission Date: 20050328
  Serious: Yes (Hospitalization, Disabling, Other)
  Sender: FDA-Public Use
  Company Number: US-MERCK-0306USA00845

PATIENT
  Age: 63 Year
  Sex: Female

DRUGS (1)
  1. VIOXX [Suspect]
     Route: 048

REACTIONS (23)
  - ABDOMINAL PAIN LOWER [None]
  - ADVERSE EVENT [None]
  - ANIMAL BITE [None]
  - ATRIAL FIBRILLATION [None]
  - BURSITIS [None]
  - CHEST PAIN [None]
  - CORONARY ARTERY DISEASE [None]
  - DIARRHOEA [None]
  - DIVERTICULUM INTESTINAL [None]
  - EAR PAIN [None]
  - HEADACHE [None]
  - INSOMNIA [None]
  - IRRITABLE BOWEL SYNDROME [None]
  - LYMPHADENOPATHY [None]
  - MYOCARDIAL INFARCTION [None]
  - NODULE [None]
  - PHARYNGITIS STREPTOCOCCAL [None]
  - POLLAKIURIA [None]
  - POLYTRAUMATISM [None]
  - RASH MACULAR [None]
  - SYNCOPE [None]
  - URINARY TRACT INFECTION [None]
  - VIRAL INFECTION [None]
